FAERS Safety Report 23959414 (Version 1)
Quarter: 2024Q2

REPORT INFORMATION
  Report Type: Spontaneous
  Country: US (occurrence: US)
  Receive Date: 20240611
  Receipt Date: 20240611
  Transmission Date: 20240716
  Serious: Yes (Hospitalization, Other)
  Sender: FDA-Public Use
  Company Number: US-SA-SAC20240610000053

PATIENT
  Age: 78 Year
  Sex: Male

DRUGS (7)
  1. DUPIXENT [Suspect]
     Active Substance: DUPILUMAB
     Indication: Dermatitis atopic
     Dosage: 300 MG, QOW
     Route: 058
  2. LISINOPRIL [Interacting]
     Active Substance: LISINOPRIL
  3. SPIRONOLACTONE [Interacting]
     Active Substance: SPIRONOLACTONE
  4. POTASSIUM CHLORIDE [Interacting]
     Active Substance: POTASSIUM CHLORIDE
     Indication: Blood potassium increased
  5. AMIODARONE [Interacting]
     Active Substance: AMIODARONE
  6. WARFARIN [Interacting]
     Active Substance: WARFARIN
  7. ASPIRIN [Interacting]
     Active Substance: ASPIRIN

REACTIONS (10)
  - Atrial fibrillation [Unknown]
  - Haemorrhage [Unknown]
  - Dizziness [Unknown]
  - Hypotension [Unknown]
  - Drug interaction [Unknown]
  - International normalised ratio increased [Unknown]
  - Sleep disorder due to a general medical condition [Unknown]
  - Dermatitis atopic [Unknown]
  - Erythema [Unknown]
  - Pruritus [Unknown]
